FAERS Safety Report 8451038-9 (Version None)
Quarter: 2012Q2

REPORT INFORMATION
  Report Type: 
  Country: None (occurrence: None)
  Receive Date: 20120620
  Receipt Date: 20120614
  Transmission Date: 20120825
  Serious: Yes (Hospitalization)
  Sender: FDA-Public Use
  Company Number: GB-PFIZER INC-2012064215

PATIENT
  Age: 28 Year
  Sex: Female
  Weight: 70 kg

DRUGS (1)
  1. DOXYCYLINE HYCLATE [Suspect]
     Dosage: 100 MG UNIT DOSE, TAKEN AT NIGHT
     Route: 048

REACTIONS (4)
  - FOREIGN BODY [None]
  - OESOPHAGEAL PAIN [None]
  - BURN OESOPHAGEAL [None]
  - OESOPHAGEAL ULCER [None]
